FAERS Safety Report 24992575 (Version 2)
Quarter: 2025Q1

REPORT INFORMATION
  Report Type: Report from Study
  Country: KR (occurrence: KR)
  Receive Date: 20250221
  Receipt Date: 20250225
  Transmission Date: 20250409
  Serious: Yes (Hospitalization)
  Sender: ABBVIE
  Company Number: KR-ABBVIE-6135653

PATIENT
  Age: 59 Year
  Sex: Male
  Weight: 65 kg

DRUGS (9)
  1. RINVOQ [Suspect]
     Active Substance: UPADACITINIB
     Indication: Ankylosing spondylitis
     Route: 048
     Dates: start: 20241121
  2. MOTILITONE TAB [Concomitant]
     Indication: Gastrointestinal disorder prophylaxis
     Route: 048
     Dates: start: 20250207, end: 20250211
  3. CYNACTEN [Concomitant]
     Indication: Chronic kidney disease
     Route: 030
     Dates: start: 20250123, end: 20250123
  4. LEVOTENSION [Concomitant]
     Indication: Hypertension
     Dosage: TAB 5MG
     Route: 048
     Dates: start: 20241121
  5. LASIX [Concomitant]
     Active Substance: FUROSEMIDE
     Indication: Chronic kidney disease
     Route: 048
     Dates: start: 20250123
  6. ULTRACET [Concomitant]
     Active Substance: ACETAMINOPHEN\TRAMADOL HYDROCHLORIDE
     Indication: Ankylosing spondylitis
     Route: 048
     Dates: start: 20241105
  7. NEXILEN [Concomitant]
     Indication: Gastrointestinal disorder prophylaxis
     Route: 048
     Dates: start: 20250207, end: 20250211
  8. LITORVAZET [Concomitant]
     Indication: Hyperlipidaemia
     Route: 048
     Dates: start: 20241121
  9. NEWZATIN [Concomitant]
     Indication: Gastrointestinal disorder prophylaxis
     Dosage: 150 MG
     Route: 048
     Dates: start: 20250113, end: 20250122

REACTIONS (1)
  - Ureterolithiasis [Recovered/Resolved]

NARRATIVE: CASE EVENT DATE: 20250112
